FAERS Safety Report 5067083-X (Version None)
Quarter: 2006Q3

REPORT INFORMATION
  Report Type: 
  Country: None (occurrence: None)
  Receive Date: 20060727
  Receipt Date: 20060714
  Transmission Date: 20061208
  Serious: Yes (Hospitalization)
  Sender: FDA-Public Use
  Company Number: 2006S1006857

PATIENT
  Age: 70 Year
  Sex: Male

DRUGS (8)
  1. FENTANYL TRANSDERMAL SYSTEM [Suspect]
     Indication: HIP FRACTURE
     Dosage: 75 UG/HR; Q3D; TDER
     Route: 062
     Dates: start: 20060201
  2. HYDROCODONE BITARTRATE AND ACETAMINOPHEN [Concomitant]
  3. ALPRAZOLAM [Concomitant]
  4. THEOPHYLLINE [Concomitant]
  5. CLONIDINE [Concomitant]
  6. FINASTERIDE [Concomitant]
  7. WARFARIN SODIUM [Concomitant]
  8. ZOLPIDEM [Concomitant]

REACTIONS (5)
  - ANGER [None]
  - ANXIETY [None]
  - DRUG INEFFECTIVE [None]
  - HOSTILITY [None]
  - PHYSICAL ASSAULT [None]
